FAERS Safety Report 5990390-0 (Version None)
Quarter: 2008Q4

REPORT INFORMATION
  Report Type: 
  Country: None (occurrence: None)
  Receive Date: 20081211
  Receipt Date: 20081203
  Transmission Date: 20090506
  Serious: Yes (Other)
  Sender: FDA-Public Use
  Company Number: CL-ASTRAZENECA-2008UW27253

PATIENT
  Age: 43 Year
  Sex: Female

DRUGS (2)
  1. PROPOFOL [Suspect]
     Indication: ANAESTHESIA
     Dosage: 7 MG / KG / HOUR
     Route: 042
  2. PROPOFOL [Suspect]
     Dosage: 3.5 MG / KG / HOUR
     Route: 042

REACTIONS (1)
  - LACTIC ACIDOSIS [None]
